FAERS Safety Report 19483974 (Version 1)
Quarter: 2021Q3

REPORT INFORMATION
  Report Type: Spontaneous
  Country: BG (occurrence: BG)
  Receive Date: 20210701
  Receipt Date: 20210701
  Transmission Date: 20211014
  Serious: Yes (Hospitalization)
  Sender: FDA-Public Use
  Company Number: BG-JUBILANT CADISTA PHARMACEUTICALS-2021JUB00186

PATIENT
  Age: 67 Year
  Sex: Male

DRUGS (5)
  1. TELMISARTAN?HYDROCHLOROTHIAZIDE [Suspect]
     Active Substance: HYDROCHLOROTHIAZIDE\TELMISARTAN
     Indication: HYPERTENSION
     Dosage: 80/12.5 MG, 2X/DAY
     Route: 065
  2. ROSUVASTATIN. [Concomitant]
     Active Substance: ROSUVASTATIN
     Dosage: 10 MG
     Route: 065
  3. METFORMIN [Concomitant]
     Active Substance: METFORMIN HYDROCHLORIDE
     Dosage: 850 MG
     Route: 065
  4. AMLODIPINE [Concomitant]
     Active Substance: AMLODIPINE BESYLATE
     Dosage: 5 MG, 1X/DAY
     Route: 065
  5. AMIODARONE [Concomitant]
     Active Substance: AMIODARONE
     Dosage: 200 MG
     Route: 065

REACTIONS (1)
  - Malignant melanoma [Recovered/Resolved]

NARRATIVE: CASE EVENT DATE: 2018
